FAERS Safety Report 8904722 (Version 1)
Quarter: 2012Q4

REPORT INFORMATION
  Report Type: 
  Country: US (occurrence: US)
  Receive Date: 20121113
  Receipt Date: 20121113
  Transmission Date: 20130627
  Serious: No
  Sender: FDA-Public Use
  Company Number: US-GLAXOSMITHKLINE-A0981542A

PATIENT
  Age: 57 Year
  Sex: Male

DRUGS (7)
  1. COREG [Suspect]
     Indication: CARDIAC DISORDER
     Dosage: 6.25MG Twice per day
     Route: 048
     Dates: start: 20120615
  2. ISRADIPINE [Suspect]
     Indication: CARDIAC DISORDER
     Dosage: 2TAB Twice per day
     Route: 048
     Dates: start: 201204, end: 20120611
  3. ALLOPURINOL [Concomitant]
  4. FUROSEMIDE [Concomitant]
  5. BIDIL [Concomitant]
  6. CLONIDINE [Concomitant]
  7. ENALAPRIL [Concomitant]

REACTIONS (5)
  - Balance disorder [Recovering/Resolving]
  - Dizziness [Unknown]
  - Chest discomfort [Unknown]
  - Dyspnoea exertional [Unknown]
  - Dyspnoea [Unknown]
